FAERS Safety Report 10044226 (Version 1)
Quarter: 2014Q1

REPORT INFORMATION
  Report Type: Spontaneous
  Country: US (occurrence: None)
  Receive Date: 20140327
  Receipt Date: 20140327
  Transmission Date: 20141002
  Serious: Yes (Other)
  Sender: FDA-Public Use
  Company Number: None

PATIENT
  Age: 42 Year
  Sex: Male
  Weight: 118.2 kg

DRUGS (1)
  1. RITUXIMAB [Suspect]
     Indication: MYOSITIS
     Route: 042
     Dates: start: 20140326, end: 20140326

REACTIONS (3)
  - Urticaria [None]
  - Pruritus [None]
  - Bronchospasm [None]
